FAERS Safety Report 5321730-3 (Version None)
Quarter: 2007Q2

REPORT INFORMATION
  Report Type: 
  Country: None (occurrence: None)
  Receive Date: 20070220
  Receipt Date: 20061010
  Transmission Date: 20071010
  Serious: No
  Sender: FDA-Public Use
  Company Number: TPA2006A01781

PATIENT
  Age: 45 Year
  Sex: Female
  Weight: 61.2356 kg

DRUGS (8)
  1. ROZEREM [Suspect]
     Indication: INSOMNIA
     Dosage: 8 MG, QHS, PER ORAL
     Route: 048
     Dates: start: 20060201
  2. CLONIDINE [Concomitant]
  3. REMERON [Concomitant]
  4. MILK OF MAGNESIA TAB [Concomitant]
  5. OXYCONTIN [Concomitant]
  6. PHENOBARBITAL TAB [Concomitant]
  7. TOPAMAX [Concomitant]
  8. LIDODERM [Concomitant]

REACTIONS (3)
  - ALOPECIA [None]
  - AXILLARY MASS [None]
  - BREAST ENLARGEMENT [None]
